FAERS Safety Report 11538957 (Version 1)
Quarter: 2015Q3

REPORT INFORMATION
  Report Type: Spontaneous
  Country: US (occurrence: None)
  Receive Date: 20150922
  Receipt Date: 20150922
  Transmission Date: 20151125
  Serious: No
  Sender: FDA-Public Use
  Company Number: None

PATIENT
  Age: 66 Year
  Sex: Female
  Weight: 79.38 kg

DRUGS (16)
  1. LEVOTHYROXINE. [Concomitant]
     Active Substance: LEVOTHYROXINE
  2. FOLIC ACID. [Concomitant]
     Active Substance: FOLIC ACID
  3. VITAMIN C [Concomitant]
     Active Substance: ASCORBIC ACID
  4. WELLBUTRIN [Suspect]
     Active Substance: BUPROPION HYDROCHLORIDE
     Indication: DEPRESSION
     Dates: start: 20150701, end: 20150728
  5. CALCIUM [Concomitant]
     Active Substance: CALCIUM
  6. VITAMIN B12 [Concomitant]
     Active Substance: CYANOCOBALAMIN
  7. MAGNESIUM [Concomitant]
     Active Substance: MAGNESIUM
  8. ZOLOFT [Concomitant]
     Active Substance: SERTRALINE HYDROCHLORIDE
  9. WELLBUTRIN [Suspect]
     Active Substance: BUPROPION HYDROCHLORIDE
     Indication: ANXIETY
     Dates: start: 20150701, end: 20150728
  10. SIMVASTATIN. [Concomitant]
     Active Substance: SIMVASTATIN
  11. FISH OIL [Concomitant]
     Active Substance: FISH OIL
  12. LUTEIN [Concomitant]
     Active Substance: LUTEIN
  13. ATENOLOL. [Concomitant]
     Active Substance: ATENOLOL
  14. VIT. D [Concomitant]
  15. VIT. B6 [Concomitant]
  16. COQ10 [Concomitant]
     Active Substance: UBIDECARENONE

REACTIONS (3)
  - Panic attack [None]
  - Disturbance in attention [None]
  - Fear [None]

NARRATIVE: CASE EVENT DATE: 20150703
